FAERS Safety Report 9530380 (Version 1)
Quarter: 2013Q3

REPORT INFORMATION
  Report Type: Spontaneous
  Country: US (occurrence: US)
  Receive Date: 20130918
  Receipt Date: 20130918
  Transmission Date: 20140515
  Serious: No
  Sender: FDA-Public Use
  Company Number: US-B.I. PHARMACEUTICALS,INC./RIDGEFIELD-2013-BI-28059BP

PATIENT
  Sex: Female
  Weight: 81 kg

DRUGS (2)
  1. SPIRIVA [Suspect]
     Indication: CHRONIC OBSTRUCTIVE PULMONARY DISEASE
     Dosage: 18 MCG
     Route: 055
     Dates: start: 2010
  2. LEXAPRO [Concomitant]
     Indication: STRESS
     Dosage: 10 MG
     Route: 048

REACTIONS (1)
  - Cystitis [Not Recovered/Not Resolved]
